FAERS Safety Report 7197760-6 (Version None)
Quarter: 2010Q4

REPORT INFORMATION
  Report Type: 
  Country: None (occurrence: None)
  Receive Date: 20101227
  Receipt Date: 20101215
  Transmission Date: 20110411
  Serious: Yes (Other)
  Sender: FDA-Public Use
  Company Number: US-ELI_LILLY_AND_COMPANY-US201010001749

PATIENT
  Sex: Female

DRUGS (4)
  1. FORTEO [Suspect]
     Indication: OSTEOPOROSIS
     Dosage: 20 UG, DAILY (1/D)
     Route: 065
     Dates: start: 20100716
  2. FORTEO [Suspect]
     Dosage: 20 UG, DAILY (1/D)
  3. PREDNISONE [Concomitant]
     Dates: start: 19700101
  4. CELEBREX [Concomitant]
     Indication: RHEUMATOID ARTHRITIS

REACTIONS (10)
  - CONTUSION [None]
  - ERYTHEMA [None]
  - INJECTION SITE ERYTHEMA [None]
  - MALAISE [None]
  - MUSCULOSKELETAL STIFFNESS [None]
  - OEDEMA PERIPHERAL [None]
  - PAIN [None]
  - POLYARTHRITIS [None]
  - SKIN DISORDER [None]
  - THROMBOSIS [None]
